FAERS Safety Report 9479598 (Version 2)
Quarter: 2013Q4

REPORT INFORMATION
  Report Type: Report from Study
  Country: US (occurrence: US)
  Receive Date: 20130827
  Receipt Date: 20131106
  Transmission Date: 20140711
  Serious: Yes (Hospitalization)
  Sender: FDA-Public Use
  Company Number: PHEH2013US017851

PATIENT
  Age: 33 Year
  Sex: Male

DRUGS (9)
  1. AFINITOR [Suspect]
     Indication: ANGIOMYOLIPOMA
     Dosage: 10 MG, DAILY
     Route: 048
     Dates: start: 20130327, end: 20131016
  2. PHENOBARBITAL [Concomitant]
  3. ADVAIR [Concomitant]
  4. CELEXA [Concomitant]
     Indication: DEPRESSION
  5. DEPAKOTE [Concomitant]
  6. NEXIUM//ESOMEPRAZOLE SODIUM [Concomitant]
     Dosage: 40 MG, QD
  7. SODIUM BICARBONATE [Concomitant]
     Dosage: 650 MG, BID
  8. RELPAX [Concomitant]
     Indication: MIGRAINE
     Dosage: 40 MG, PRN
  9. RELPAX [Concomitant]
     Indication: SLEEP DISORDER

REACTIONS (5)
  - Renal pain [Recovered/Resolved]
  - Renal cyst haemorrhage [Recovered/Resolved]
  - Nausea [Recovered/Resolved]
  - Vomiting [Recovered/Resolved]
  - Diarrhoea [Recovered/Resolved]
